FAERS Safety Report 6013649-X (Version None)
Quarter: 2008Q4

REPORT INFORMATION
  Report Type: 
  Country: None (occurrence: None)
  Receive Date: 20081219
  Receipt Date: 20081208
  Transmission Date: 20090506
  Serious: Yes (Death, Other)
  Sender: FDA-Public Use
  Company Number: US-ROCHE-601979

PATIENT
  Age: 32 Year
  Sex: Male

DRUGS (7)
  1. MYCOPHENOLATE MOFETIL [Suspect]
     Indication: WEGENER'S GRANULOMATOSIS
     Route: 065
  2. RITUXIMAB [Suspect]
     Indication: WEGENER'S GRANULOMATOSIS
     Route: 042
  3. RITUXIMAB [Suspect]
     Route: 042
  4. AZATHIOPRINE [Suspect]
     Indication: WEGENER'S GRANULOMATOSIS
     Route: 065
  5. METHOTREXATE [Suspect]
     Indication: WEGENER'S GRANULOMATOSIS
     Route: 065
  6. ETANERCEPT [Suspect]
     Indication: WEGENER'S GRANULOMATOSIS
     Route: 065
  7. INFLIXIMAB [Suspect]
     Indication: WEGENER'S GRANULOMATOSIS
     Route: 065

REACTIONS (3)
  - CONDITION AGGRAVATED [None]
  - DRUG INEFFECTIVE [None]
  - PNEUMONIA ADENOVIRAL [None]
